FAERS Safety Report 26134216 (Version 2)
Quarter: 2025Q4

REPORT INFORMATION
  Report Type: Report from Study
  Country: CO (occurrence: CO)
  Receive Date: 20251209
  Receipt Date: 20251222
  Transmission Date: 20260118
  Serious: Yes (Other)
  Sender: TAKEDA
  Company Number: CO-TAKEDA-2025TUS084625

PATIENT
  Age: 6 Year
  Sex: Female
  Weight: 23.2 kg

DRUGS (2)
  1. HUMAN IMMUNOGLOBULIN G\HYALURONIDASE RECOMBINANT HUMAN [Suspect]
     Active Substance: HUMAN IMMUNOGLOBULIN G\HYALURONIDASE (HUMAN RECOMBINANT)
     Indication: Primary immunodeficiency syndrome
     Dosage: 10 GRAM, MONTHLY
     Dates: start: 20250923
  2. HUMAN IMMUNOGLOBULIN G\HYALURONIDASE RECOMBINANT HUMAN [Suspect]
     Active Substance: HUMAN IMMUNOGLOBULIN G\HYALURONIDASE (HUMAN RECOMBINANT)
     Dosage: 10 GRAM, Q4WEEKS

REACTIONS (17)
  - Nephrotic syndrome [Unknown]
  - Asthenia [Unknown]
  - Abdominal pain upper [Not Recovered/Not Resolved]
  - Nausea [Unknown]
  - Influenza like illness [Recovered/Resolved]
  - Nephropathy [Unknown]
  - Neck pain [Recovered/Resolved]
  - Incorrect dose administered [Unknown]
  - Treatment noncompliance [Unknown]
  - Headache [Recovered/Resolved]
  - Weight increased [Unknown]
  - Product prescribing error [Unknown]
  - Weight decreased [Unknown]
  - Body height decreased [Unknown]
  - Infusion related reaction [Recovered/Resolved]
  - Infusion site pruritus [Recovered/Resolved]
  - Mass [Recovered/Resolved]

NARRATIVE: CASE EVENT DATE: 20250923
